FAERS Safety Report 10917465 (Version 1)
Quarter: 2015Q1

REPORT INFORMATION
  Report Type: Other
  Country: GB (occurrence: GB)
  Receive Date: 20150316
  Receipt Date: 20150316
  Transmission Date: 20150721
  Serious: Yes (Other)
  Sender: FDA-Public Use
  Company Number: GB-SHIRE-GB201502006

PATIENT
  Sex: Male

DRUGS (2)
  1. ELAPRASE [Suspect]
     Active Substance: IDURSULFASE
     Indication: PRODUCT USED FOR UNKNOWN INDICATION
     Dosage: 6 MG (1 VIAL), 1X/WEEK (ALTERNATING WITH 12 MG WEEKLY)
     Route: 041
  2. ELAPRASE [Suspect]
     Active Substance: IDURSULFASE
     Dosage: 12 MG (TWO VIALS), 1X/WEEK (ALTERNATING WITH 6 MG WEEKLY)
     Route: 041

REACTIONS (1)
  - Lower respiratory tract infection [Not Recovered/Not Resolved]
